FAERS Safety Report 9866291 (Version 2)
Quarter: 2014Q1

REPORT INFORMATION
  Report Type: Spontaneous
  Country: US (occurrence: US)
  Receive Date: 20140203
  Receipt Date: 20140203
  Transmission Date: 20141002
  Serious: No
  Sender: FDA-Public Use
  Company Number: US-ALLERGAN-1318292US

PATIENT
  Age: 82 Year
  Sex: Female

DRUGS (7)
  1. RESTASIS [Suspect]
     Indication: DRY EYE
     Dosage: 2 GTT, BID
     Route: 047
     Dates: start: 20131113, end: 20131114
  2. COQ 10 [Concomitant]
     Indication: NUTRITIONAL SUPPLEMENTATION
     Dosage: 1 N/A, QD
     Route: 048
  3. OCULIND [Concomitant]
     Indication: NUTRITIONAL SUPPLEMENTATION
     Dosage: 2 N/A, QD
     Route: 048
  4. KRILL OIL [Concomitant]
     Indication: NUTRITIONAL SUPPLEMENTATION
     Dosage: 1 N/A, QD
     Route: 048
  5. JOINT AND BONE SUPPLEMENT NOS [Concomitant]
     Indication: NUTRITIONAL SUPPLEMENTATION
     Dosage: 1 N/A, QD
     Route: 048
  6. BAUSCH AND LOMB ADVANCED DRY EYE RELIEF [Concomitant]
     Indication: EYE LUBRICATION THERAPY
     Dosage: UNK
  7. RESVERATROL [Concomitant]
     Indication: NUTRITIONAL SUPPLEMENTATION
     Dosage: UNK

REACTIONS (1)
  - Blindness transient [Recovered/Resolved]
